FAERS Safety Report 18201828 (Version 1)
Quarter: 2020Q3

REPORT INFORMATION
  Report Type: Spontaneous
  Country: US (occurrence: US)
  Receive Date: 20200827
  Receipt Date: 20200827
  Transmission Date: 20201103
  Serious: Yes (Hospitalization, Other)
  Sender: FDA-Public Use
  Company Number: US-PFIZER INC-2020319072

PATIENT
  Age: 24 Year
  Sex: Male

DRUGS (3)
  1. TETRACYCLINE HCL [Suspect]
     Active Substance: TETRACYCLINE HYDROCHLORIDE
     Dosage: 500MG, (FOUR TIMES A DAY)
     Route: 048
     Dates: start: 19660911, end: 19660917
  2. TETRACYCLINE HCL [Suspect]
     Active Substance: TETRACYCLINE HYDROCHLORIDE
     Indication: UPPER RESPIRATORY TRACT INFECTION
     Dosage: 250 MG, (EVERY FOUR HOURS)
     Route: 048
     Dates: start: 19660911, end: 19660917
  3. TETRACYCLINE HCL [Suspect]
     Active Substance: TETRACYCLINE HYDROCHLORIDE
     Indication: ANTIBIOTIC THERAPY
     Dosage: 2 G

REACTIONS (3)
  - Papilloedema [Recovered/Resolved]
  - Idiopathic intracranial hypertension [Recovered/Resolved]
  - Hypersensitivity [Recovered/Resolved]
